FAERS Safety Report 4265882-5 (Version None)
Quarter: 2004Q1

REPORT INFORMATION
  Report Type: 
  Country: None (occurrence: None)
  Receive Date: 20040106
  Receipt Date: 20031224
  Transmission Date: 20041129
  Serious: Yes (Other)
  Sender: FDA-Public Use
  Company Number: US-JNJFOC-20031205314

PATIENT
  Age: 77 Year
  Sex: Female
  Weight: 72.5755 kg

DRUGS (14)
  1. INFLIXIMAB (INFLIXIMAB, RECOMBINANT) LYOPHILIZED POWDER [Suspect]
     Indication: RHEUMATOID ARTHRITIS
     Dosage: START DATE 25-MAY (YEAR UNSPECIFIED)
  2. PREDNISONE [Concomitant]
  3. PLAQUENIL [Concomitant]
  4. ACTONEL [Concomitant]
  5. ATROVENT [Concomitant]
  6. SEREVENT [Concomitant]
  7. HYDROCHLOROTHIAZIDE [Concomitant]
  8. POTASSIUM (POTASSIUM) [Concomitant]
  9. TRIAMCINOLONE (TRIAMCINOLONE) CREAM [Concomitant]
  10. CLOBETASOL (CLOBETASOL) CREAM [Concomitant]
  11. DESONIDE 5% (DESONIDE) CREAM [Concomitant]
  12. CALCIUM (CALCIUM) [Concomitant]
  13. FOLIC ACID [Concomitant]
  14. MULTIVITAMIN (MULTIVITAMINS) [Concomitant]

REACTIONS (1)
  - BASAL CELL CARCINOMA [None]
